FAERS Safety Report 10109392 (Version 1)
Quarter: 2014Q2

REPORT INFORMATION
  Report Type: Spontaneous
  Country: US (occurrence: None)
  Receive Date: 20140424
  Receipt Date: 20140424
  Transmission Date: 20141212
  Serious: No
  Sender: FDA-Public Use
  Company Number: None

PATIENT
  Age: 70 Year
  Sex: Male
  Weight: 99.79 kg

DRUGS (1)
  1. CLEAR TINNITUS [Suspect]
     Indication: TINNITUS
     Route: 048
     Dates: start: 20140319

REACTIONS (4)
  - Product odour abnormal [None]
  - Product taste abnormal [None]
  - Vomiting [None]
  - Product quality issue [None]
